FAERS Safety Report 10219095 (Version 2)
Quarter: 2014Q2

REPORT INFORMATION
  Report Type: Spontaneous
  Country: US (occurrence: US)
  Receive Date: 20140605
  Receipt Date: 20140605
  Transmission Date: 20141212
  Serious: Yes (Hospitalization, Other)
  Sender: FDA-Public Use
  Company Number: US-GILEAD-2014-0097719

PATIENT
  Sex: Female

DRUGS (2)
  1. LETAIRIS [Suspect]
     Indication: PULMONARY HYPERTENSION
     Dosage: 2.5 MG, QD
     Route: 065
     Dates: start: 20131025
  2. REVATIO [Concomitant]

REACTIONS (2)
  - Mental status changes [Unknown]
  - Cerebrovascular accident [Unknown]
